FAERS Safety Report 17762556 (Version 1)
Quarter: 2020Q2

REPORT INFORMATION
  Report Type: Report from Study
  Country: US (occurrence: US)
  Receive Date: 20200508
  Receipt Date: 20200508
  Transmission Date: 20200714
  Serious: Yes (Other)
  Sender: FDA-Public Use
  Company Number: US-AMGEN-USANI2019111749

PATIENT
  Age: 53 Year
  Sex: Female
  Weight: 65.45 kg

DRUGS (3)
  1. PEGFILGRASTIM [Suspect]
     Active Substance: PEGFILGRASTIM
     Indication: NEUTROPENIA
     Dosage: 6 MILLIGRAM
     Route: 058
     Dates: start: 20190424
  2. CYTOXAN [Concomitant]
     Active Substance: CYCLOPHOSPHAMIDE
     Dosage: 1020 MILLIGRAM
     Route: 042
     Dates: start: 20190423, end: 20190626
  3. TAXOTERE [Concomitant]
     Active Substance: DOCETAXEL
     Dosage: 128 MILLIGRAM
     Route: 042
     Dates: start: 20190423, end: 20190626

REACTIONS (1)
  - Erythema multiforme [Recovered/Resolved]

NARRATIVE: CASE EVENT DATE: 20190627
